FAERS Safety Report 7279320-1 (Version None)
Quarter: 2011Q1

REPORT INFORMATION
  Report Type: 
  Country: None (occurrence: None)
  Receive Date: 20110207
  Receipt Date: 20110127
  Transmission Date: 20110831
  Serious: Yes (Other)
  Sender: FDA-Public Use
  Company Number: JP-MERCK-1102USA00095

PATIENT
  Sex: Female

DRUGS (4)
  1. DEXAMETHASONE [Concomitant]
     Route: 065
     Dates: start: 20100101, end: 20100101
  2. EMEND [Suspect]
     Indication: PROPHYLAXIS OF NAUSEA AND VOMITING
     Route: 048
     Dates: start: 20100101, end: 20100101
  3. EMEND [Suspect]
     Route: 048
     Dates: start: 20100101, end: 20100101
  4. CISPLATIN [Concomitant]
     Route: 065
     Dates: start: 20100101, end: 20100101

REACTIONS (1)
  - CONVULSION [None]
